FAERS Safety Report 7458272-5 (Version None)
Quarter: 2011Q2

REPORT INFORMATION
  Report Type: 
  Country: None (occurrence: None)
  Receive Date: 20110504
  Receipt Date: 20110427
  Transmission Date: 20111010
  Serious: Yes (Hospitalization)
  Sender: FDA-Public Use
  Company Number: JP-MERCK-1102USA02410

PATIENT
  Age: 62 Year
  Sex: Female
  Weight: 48 kg

DRUGS (4)
  1. URSO 250 [Concomitant]
     Indication: HEPATITIS C
     Route: 048
     Dates: start: 20040128
  2. AZULFIDINE [Suspect]
     Indication: ARTHRITIS
     Route: 048
     Dates: start: 20110101, end: 20110215
  3. PEPCID RPD [Suspect]
     Indication: GASTRITIS PROPHYLAXIS
     Route: 048
     Dates: start: 20110101, end: 20110214
  4. THYRADIN-S [Concomitant]
     Indication: HYPOTHYROIDISM
     Route: 048
     Dates: start: 20070711

REACTIONS (2)
  - FEBRILE NEUTROPENIA [None]
  - AGRANULOCYTOSIS [None]
